FAERS Safety Report 6761883-3 (Version None)
Quarter: 2010Q2

REPORT INFORMATION
  Report Type: 
  Country: None (occurrence: None)
  Receive Date: 20100609
  Receipt Date: 20100526
  Transmission Date: 20101027
  Serious: Yes (Other)
  Sender: FDA-Public Use
  Company Number: PHFR2010GB00803

PATIENT
  Sex: Male

DRUGS (3)
  1. VITALEYES BRIGHTENER (NVO) [Suspect]
     Dosage: UNK
     Route: 031
     Dates: start: 20030101, end: 20090101
  2. RAMIPRIL [Concomitant]
     Dosage: 10 MG, QD
     Route: 048
  3. AMLODIPINE [Concomitant]
     Dosage: 5 MG, QD
     Route: 048

REACTIONS (1)
  - BLOOD PRESSURE FLUCTUATION [None]
